FAERS Safety Report 7047921-1 (Version None)
Quarter: 2010Q4

REPORT INFORMATION
  Report Type: 
  Country: None (occurrence: None)
  Receive Date: 20101015
  Receipt Date: 20101004
  Transmission Date: 20110411
  Serious: Yes (Hospitalization)
  Sender: FDA-Public Use
  Company Number: AT-WYE-G06761410

PATIENT
  Age: 22 Year
  Sex: Female

DRUGS (6)
  1. VENLAFAXINE HCL [Suspect]
     Indication: POST-TRAUMATIC STRESS DISORDER
     Dosage: 300 MG DAILY DOSE
     Dates: start: 20090429, end: 20100909
  2. ZOLPIDEM TARTRATE [Concomitant]
  3. TEMESTA [Concomitant]
  4. BURONIL [Concomitant]
  5. MUTAN [Suspect]
  6. ABILIFY [Suspect]

REACTIONS (3)
  - CONDITION AGGRAVATED [None]
  - RESTLESSNESS [None]
  - TREMOR [None]
